FAERS Safety Report 10133469 (Version 3)
Quarter: 2014Q4

REPORT INFORMATION
  Report Type: Report from Study
  Country: AU (occurrence: AU)
  Receive Date: 20140428
  Receipt Date: 20141007
  Transmission Date: 20150528
  Serious: Yes (Hospitalization, Other)
  Sender: FDA-Public Use
  Company Number: AU-BRISTOL-MYERS SQUIBB COMPANY-20655320

PATIENT
  Age: 60 Year
  Sex: Female

DRUGS (14)
  1. ORENCIA [Suspect]
     Active Substance: ABATACEPT
     Indication: RHEUMATOID ARTHRITIS
     Route: 042
     Dates: start: 20120229
  2. VENTOLIN [Concomitant]
     Active Substance: ALBUTEROL SULFATE
  3. OXYBUTYNIN [Concomitant]
     Active Substance: OXYBUTYNIN
  4. ARAVA [Concomitant]
     Active Substance: LEFLUNOMIDE
  5. CELEBREX [Concomitant]
     Active Substance: CELECOXIB
  6. SINEMET [Concomitant]
     Active Substance: CARBIDOPA\LEVODOPA
  7. CALTRATE [Concomitant]
     Active Substance: CALCIUM CARBONATE
  8. NEXIUM [Concomitant]
     Active Substance: ESOMEPRAZOLE MAGNESIUM
  9. METHOTREXATE [Concomitant]
     Active Substance: METHOTREXATE
  10. KINSON [Concomitant]
  11. SERETIDE [Concomitant]
     Active Substance: FLUTICASONE FUROATE\SALMETEROL XINAFOATE
  12. VITAMIN D [Concomitant]
     Active Substance: CHOLECALCIFEROL
  13. PREDNISOLONE. [Concomitant]
     Active Substance: PREDNISOLONE
  14. NORETHISTERONE [Concomitant]
     Active Substance: NORETHINDRONE

REACTIONS (1)
  - Arthropathy [Unknown]

NARRATIVE: CASE EVENT DATE: 2014
